FAERS Safety Report 19699447 (Version 1)
Quarter: 2021Q3

REPORT INFORMATION
  Report Type: Spontaneous
  Country: US (occurrence: US)
  Receive Date: 20210813
  Receipt Date: 20210813
  Transmission Date: 20211014
  Serious: No
  Sender: FDA-Public Use
  Company Number: US-ASTRAZENECA-2021A630592

PATIENT
  Sex: Female

DRUGS (1)
  1. FASENRA [Suspect]
     Active Substance: BENRALIZUMAB
     Dosage: DOSE: UNKNOWN UNKNOWN
     Route: 058

REACTIONS (1)
  - Feeling abnormal [Unknown]
